FAERS Safety Report 21850284 (Version 2)
Quarter: 2023Q1

REPORT INFORMATION
  Report Type: Spontaneous
  Country: AU (occurrence: AU)
  Receive Date: 20230111
  Receipt Date: 20230130
  Transmission Date: 20230418
  Serious: Yes (Hospitalization, Other)
  Sender: FDA-Public Use
  Company Number: AU-MYLANLABS-2023M1001656

PATIENT
  Age: 64 Year
  Sex: Female
  Weight: 80 kg

DRUGS (10)
  1. CLOZARIL [Suspect]
     Active Substance: CLOZAPINE
     Indication: Schizophrenia
     Dosage: 75-100MG
     Route: 048
     Dates: start: 20220408
  2. CLOZARIL [Suspect]
     Active Substance: CLOZAPINE
     Dosage: 50 MILLIGRAM
     Route: 048
     Dates: start: 20220408
  3. CLOZARIL [Suspect]
     Active Substance: CLOZAPINE
     Dosage: 25 MILLIGRAM, BID (50 MILLIGRAM)
     Route: 048
  4. LITHIUM [Concomitant]
     Active Substance: LITHIUM
     Dosage: 250 MILLIGRAM, BID
     Route: 065
  5. LORAZEPAM [Concomitant]
     Active Substance: LORAZEPAM
     Dosage: 1 MILLIGRAM, QD
     Route: 065
  6. LEVOTHYROXINE [Concomitant]
     Active Substance: LEVOTHYROXINE
     Dosage: 50 MICROGRAM, QD (50MICROGRAMS MANE)
     Route: 065
  7. PARACETAMOL OSTEO [Concomitant]
     Dosage: 1330 MILLIGRAM, TID (1330MG TDS)
     Route: 065
  8. OMEPRAZOLE [Concomitant]
     Active Substance: OMEPRAZOLE
     Dosage: 20 MILLIGRAM, QD
     Route: 065
  9. ROSUVASTATIN [Concomitant]
     Active Substance: ROSUVASTATIN
     Dosage: 10 MILLIGRAM, QD (10MG NOCTE)
     Route: 065
  10. LAMOTRIGINE [Concomitant]
     Active Substance: LAMOTRIGINE
     Dosage: 100 MILLIGRAM, QD
     Route: 065

REACTIONS (27)
  - Constipation [Unknown]
  - Myocarditis [Unknown]
  - Troponin increased [Recovering/Resolving]
  - Pleurothotonus [Unknown]
  - Mobility decreased [Unknown]
  - COVID-19 [Unknown]
  - Affective disorder [Unknown]
  - Blood sodium increased [Recovered/Resolved]
  - Blood bicarbonate decreased [Unknown]
  - Blood creatinine increased [Not Recovered/Not Resolved]
  - Glomerular filtration rate decreased [Not Recovered/Not Resolved]
  - Antipsychotic drug level below therapeutic [Not Recovered/Not Resolved]
  - Blood albumin decreased [Recovered/Resolved]
  - Blood calcium increased [Not Recovered/Not Resolved]
  - Blood cholesterol increased [Unknown]
  - Blood triglycerides increased [Unknown]
  - High density lipoprotein decreased [Unknown]
  - Low density lipoprotein increased [Unknown]
  - Non-high-density lipoprotein cholesterol increased [Unknown]
  - Gamma-glutamyltransferase increased [Unknown]
  - Calcium ionised increased [Unknown]
  - Mean cell volume increased [Recovered/Resolved]
  - Platelet count increased [Recovered/Resolved]
  - White blood cell count increased [Not Recovered/Not Resolved]
  - Neutrophil count increased [Not Recovered/Not Resolved]
  - Monocyte count increased [Recovered/Resolved]
  - Product dose omission issue [Unknown]

NARRATIVE: CASE EVENT DATE: 20221130
